FAERS Safety Report 4440250-1 (Version None)
Quarter: 2004Q3

REPORT INFORMATION
  Report Type: 
  Country: None (occurrence: None)
  Receive Date: 20040903
  Receipt Date: 20040301
  Transmission Date: 20050211
  Serious: No
  Sender: FDA-Public Use
  Company Number: US-GLAXOSMITHKLINE-A0500700A

PATIENT
  Sex: Male

DRUGS (2)
  1. REQUIP [Suspect]
     Indication: PARKINSON'S DISEASE
     Dosage: 3MG THREE TIMES PER DAY
     Route: 048
     Dates: start: 20010101
  2. SINEMET CR [Concomitant]

REACTIONS (1)
  - ABDOMINAL PAIN LOWER [None]
